FAERS Safety Report 22084871 (Version 1)
Quarter: 2023Q1

REPORT INFORMATION
  Report Type: Spontaneous
  Country: US (occurrence: None)
  Receive Date: 20230310
  Receipt Date: 20230310
  Transmission Date: 20230417
  Serious: Yes (Death)
  Sender: FDA-Public Use
  Company Number: None

PATIENT
  Age: 62 Year
  Sex: Male
  Weight: 148.23 kg

DRUGS (20)
  1. REVLIMID [Suspect]
     Active Substance: LENALIDOMIDE
     Indication: Plasma cell myeloma
     Dosage: FREQUENCY : DAILY;?
     Route: 048
     Dates: start: 20220722, end: 20230309
  2. ACYCLOVIR [Concomitant]
     Active Substance: ACYCLOVIR
  3. AMLODIPINE BESYLATE [Concomitant]
     Active Substance: AMLODIPINE BESYLATE
  4. ARIPIPRAZOLE [Concomitant]
     Active Substance: ARIPIPRAZOLE
  5. ATORVASTATIN [Concomitant]
     Active Substance: ATORVASTATIN
  6. CLONIDINE HYDROCHLORIDE [Concomitant]
     Active Substance: CLONIDINE HYDROCHLORIDE
  7. DEXAMETHASONE [Concomitant]
     Active Substance: DEXAMETHASONE
  8. duloxetine 30 mg capsule,delayed release [Concomitant]
  9. FAMOTIDINE 20 MG TABS [Concomitant]
  10. GABAPENTIN [Concomitant]
     Active Substance: GABAPENTIN
  11. Jantoven 10 mg tablet [Concomitant]
  12. LORAZEPAM [Concomitant]
     Active Substance: LORAZEPAM
  13. metoprolol succinate ER 50 mg tablet,extended release 24 hr [Concomitant]
  14. capsule,delayed release [Concomitant]
  15. oxybutynin chloride ER 10 mg tablet,extended release 24 hr [Concomitant]
  16. TAMSULOSIN HYDROCHLORIDE [Concomitant]
     Active Substance: TAMSULOSIN HYDROCHLORIDE
  17. TORSEMIDE 20 MG TABS [Concomitant]
  18. tramadol 50 mg tablet [Concomitant]
  19. TRAZODONE [Concomitant]
     Active Substance: TRAZODONE HYDROCHLORIDE
  20. XARELTO [Concomitant]
     Active Substance: RIVAROXABAN

REACTIONS (1)
  - Death [None]

NARRATIVE: CASE EVENT DATE: 20230309
